FAERS Safety Report 8067830-9 (Version None)
Quarter: 2012Q1

REPORT INFORMATION
  Report Type: 
  Country: None (occurrence: None)
  Receive Date: 20120124
  Receipt Date: 20120117
  Transmission Date: 20120608
  Serious: Yes (Other)
  Sender: FDA-Public Use
  Company Number: US-ASTRAZENECA-2012SE03719

PATIENT
  Sex: Male

DRUGS (4)
  1. SYMBICORT [Suspect]
     Route: 055
  2. PROVENTIL [Concomitant]
  3. ALBUTEROL [Concomitant]
  4. BENADRYL [Concomitant]

REACTIONS (6)
  - DRUG DOSE OMISSION [None]
  - WRONG DRUG ADMINISTERED [None]
  - SUFFOCATION FEELING [None]
  - OXYGEN SATURATION DECREASED [None]
  - CHRONIC OBSTRUCTIVE PULMONARY DISEASE [None]
  - DYSPNOEA [None]
